FAERS Safety Report 7792475-5 (Version None)
Quarter: 2011Q4

REPORT INFORMATION
  Report Type: 
  Country: None (occurrence: None)
  Receive Date: 20111003
  Receipt Date: 20110927
  Transmission Date: 20120403
  Serious: Yes (Hospitalization, Other)
  Sender: FDA-Public Use
  Company Number: DK-PFIZER INC-2011113569

PATIENT
  Age: 68 Year
  Sex: Female
  Weight: 70 kg

DRUGS (2)
  1. EFFEXOR [Suspect]
     Indication: DEPRESSION
     Dosage: 75 MG, 1X/DAY
     Route: 048
     Dates: start: 20070816, end: 20101001
  2. EFFEXOR [Suspect]
     Indication: DEATH OF RELATIVE
     Dosage: 75 MG, ALTERNATE DAY
     Dates: start: 20101001

REACTIONS (6)
  - WITHDRAWAL SYNDROME [None]
  - ACCOMMODATION DISORDER [None]
  - MOVEMENT DISORDER [None]
  - MUSCULAR WEAKNESS [None]
  - TREMOR [None]
  - CREUTZFELDT-JAKOB DISEASE [None]
